FAERS Safety Report 10678520 (Version 1)
Quarter: 2014Q4

REPORT INFORMATION
  Report Type: Spontaneous
  Country: US (occurrence: US)
  Receive Date: 20141229
  Receipt Date: 20141229
  Transmission Date: 20150529
  Serious: No
  Sender: FDA-Public Use
  Company Number: US-GILEAD-2014-0128888

PATIENT
  Age: 5 Year
  Sex: Female

DRUGS (3)
  1. LETAIRIS [Suspect]
     Active Substance: AMBRISENTAN
     Indication: PRODUCT USED FOR UNKNOWN INDICATION
     Dosage: 5 MG, QD
     Route: 065
     Dates: start: 20140113
  2. ADCIRCA [Concomitant]
     Active Substance: TADALAFIL
  3. ORENITRAM [Concomitant]
     Active Substance: TREPROSTINIL

REACTIONS (1)
  - Nasopharyngitis [Unknown]
